FAERS Safety Report 13097656 (Version 2)
Quarter: 2017Q1

REPORT INFORMATION
  Report Type: Spontaneous
  Country: US (occurrence: US)
  Receive Date: 20170109
  Receipt Date: 20170210
  Transmission Date: 20170428
  Serious: No
  Sender: FDA-Public Use
  Company Number: US-GLAXOSMITHKLINE-US2016GSK195574

PATIENT
  Age: 68 Year
  Sex: Female

DRUGS (15)
  1. VENTOLIN HFA [Concomitant]
     Active Substance: ALBUTEROL SULFATE
     Indication: BRONCHITIS
     Dosage: 1 PUFF(S), PRN
     Route: 055
     Dates: start: 2016
  2. RANITIDINE HYDROCHLORIDE. [Concomitant]
     Active Substance: RANITIDINE HYDROCHLORIDE
  3. LEVOTHYROXINE. [Concomitant]
     Active Substance: LEVOTHYROXINE
  4. BUSPAR [Concomitant]
     Active Substance: BUSPIRONE HYDROCHLORIDE
  5. ARNUITY ELLIPTA [Suspect]
     Active Substance: FLUTICASONE FUROATE
     Indication: PRODUCT USED FOR UNKNOWN INDICATION
     Dosage: 1 PUFF(S), 1D
     Route: 055
     Dates: start: 201603, end: 20161020
  6. VERAMYST [Concomitant]
     Active Substance: FLUTICASONE FUROATE
     Indication: RESPIRATORY TRACT CONGESTION
     Dosage: 110 MCG/MG, PRN
     Route: 055
     Dates: start: 2014
  7. PATANOL [Concomitant]
     Active Substance: OLOPATADINE HYDROCHLORIDE
  8. MELOXICAM. [Concomitant]
     Active Substance: MELOXICAM
  9. FOLIC ACID. [Concomitant]
     Active Substance: FOLIC ACID
  10. ATIVAN [Concomitant]
     Active Substance: LORAZEPAM
  11. AMITIZA [Concomitant]
     Active Substance: LUBIPROSTONE
  12. TRAZODONE [Concomitant]
     Active Substance: TRAZODONE HYDROCHLORIDE
  13. VENTOLIN HFA [Concomitant]
     Active Substance: ALBUTEROL SULFATE
     Indication: OROPHARYNGEAL PAIN
  14. PRAVASTATIN. [Concomitant]
     Active Substance: PRAVASTATIN
  15. LEXAPRO [Concomitant]
     Active Substance: ESCITALOPRAM OXALATE

REACTIONS (4)
  - Oropharyngeal pain [Recovering/Resolving]
  - Bronchitis [Unknown]
  - Malaise [Recovered/Resolved]
  - Fungal infection [Recovering/Resolving]

NARRATIVE: CASE EVENT DATE: 2016
